FAERS Safety Report 7638176-5 (Version None)
Quarter: 2011Q3

REPORT INFORMATION
  Report Type: 
  Country: None (occurrence: None)
  Receive Date: 20110727
  Receipt Date: 20110719
  Transmission Date: 20111222
  Serious: Yes (Death, Other)
  Sender: FDA-Public Use
  Company Number: AT-JNJFOC-20110708979

PATIENT
  Age: 23 Year
  Sex: Male

DRUGS (9)
  1. MUCOBENE [Concomitant]
     Route: 065
  2. BIOCEF [Concomitant]
     Route: 065
  3. PARACODINE [Concomitant]
     Route: 065
     Dates: start: 20101014
  4. PREDNISOLONE [Concomitant]
     Route: 065
     Dates: start: 20101008
  5. DICLOFENAC SODIUM [Concomitant]
     Route: 065
     Dates: start: 20101004
  6. AMBROXOL [Concomitant]
     Route: 065
     Dates: start: 20101001
  7. LEVOFLOXACIN [Suspect]
     Indication: PNEUMONIA
     Route: 048
     Dates: start: 20101014, end: 20101016
  8. CLINDAMYCIN [Concomitant]
     Route: 065
     Dates: start: 20101008
  9. AUGMENTIN '125' [Concomitant]
     Route: 065

REACTIONS (4)
  - PSYCHOTIC DISORDER [None]
  - ROAD TRAFFIC ACCIDENT [None]
  - COMPLETED SUICIDE [None]
  - ADJUSTMENT DISORDER WITH DEPRESSED MOOD [None]
